FAERS Safety Report 5083160-1 (Version None)
Quarter: 2006Q3

REPORT INFORMATION
  Report Type: 
  Country: None (occurrence: None)
  Receive Date: 20060818
  Receipt Date: 20060712
  Transmission Date: 20061208
  Serious: Yes (Hospitalization)
  Sender: FDA-Public Use
  Company Number: HU-SP-2006-01742

PATIENT
  Age: 68 Year
  Sex: Male

DRUGS (11)
  1. IMMUCYST [Suspect]
     Indication: BLADDER CANCER
     Route: 043
     Dates: start: 20051213, end: 20060620
  2. BETALOC [Concomitant]
  3. NITROMINT [Concomitant]
  4. EDNYT [Concomitant]
  5. METFORMIN HYDROCHLORIDE [Concomitant]
  6. DIAPREL [Concomitant]
  7. METOPROLOL [Concomitant]
  8. ENALAPRIL MALEATE [Concomitant]
  9. CIPROFLOXACIN [Concomitant]
  10. GLICLAZIDE [Concomitant]
  11. NITROGLICERINA [Concomitant]

REACTIONS (3)
  - EPIDIDYMITIS [None]
  - PYREXIA [None]
  - SCROTAL PAIN [None]
